FAERS Safety Report 5231473-2 (Version None)
Quarter: 2007Q1

REPORT INFORMATION
  Report Type: 
  Country: None (occurrence: None)
  Receive Date: 20061201
  Receipt Date: 20060913
  Transmission Date: 20070707
  Serious: No
  Sender: FDA-Public Use
  Company Number: 2006PV021285

PATIENT
  Age: 73 Year
  Sex: Female

DRUGS (8)
  1. BYETTA [Suspect]
     Indication: DIABETES MELLITUS NON-INSULIN-DEPENDENT
     Dosage: 5 MCG;BID;SC
     Route: 058
     Dates: start: 20060908
  2. HUMULIN 70/30 [Concomitant]
  3. HUMULIN L [Concomitant]
  4. THYROID TAB [Concomitant]
  5. CHAMOMILE [Concomitant]
  6. GABAPLUS [Concomitant]
  7. ISOTOL [Concomitant]
  8. CHOLINE [Concomitant]

REACTIONS (8)
  - BLOOD GLUCOSE DECREASED [None]
  - BLOOD GLUCOSE INCREASED [None]
  - DECREASED APPETITE [None]
  - DIARRHOEA [None]
  - DRUG INEFFECTIVE [None]
  - FATIGUE [None]
  - HEADACHE [None]
  - NAUSEA [None]
